FAERS Safety Report 19624846 (Version 2)
Quarter: 2021Q3

REPORT INFORMATION
  Report Type: Report from Study
  Country: US (occurrence: US)
  Receive Date: 20210728
  Receipt Date: 20210901
  Transmission Date: 20211014
  Serious: Yes (Hospitalization, Other)
  Sender: FDA-Public Use
  Company Number: US-TAKEDA-US201940695

PATIENT
  Age: 59 Year
  Sex: Female
  Weight: 53 kg

DRUGS (13)
  1. ZOFRAN [Concomitant]
     Active Substance: ONDANSETRON HYDROCHLORIDE
     Indication: NAUSEA
  2. MORPHINE [Concomitant]
     Active Substance: MORPHINE
     Dosage: 15.00 MILLIGRAM, QD
     Route: 048
     Dates: start: 20180301, end: 20180301
  3. MSIR [Concomitant]
     Active Substance: MORPHINE SULFATE
     Indication: PAIN
  4. MS CONTIN [Concomitant]
     Active Substance: MORPHINE SULFATE
     Indication: PAIN
  5. TEDUGLUTIDE [Suspect]
     Active Substance: TEDUGLUTIDE
     Indication: SHORT-BOWEL SYNDROME
     Dosage: 999 MILLIGRAM (999 MG KG TED DAILY DOSE, 999 TED DOSES PER WEEK)
     Route: 065
     Dates: start: 201703, end: 20170327
  6. TEDUGLUTIDE [Suspect]
     Active Substance: TEDUGLUTIDE
     Indication: SHORT-BOWEL SYNDROME
     Dosage: 999 MILLIGRAM (999 MG KG TED DAILY DOSE, 999 TED DOSES PER WEEK)
     Route: 065
     Dates: start: 201703, end: 20170327
  7. TEDUGLUTIDE [Suspect]
     Active Substance: TEDUGLUTIDE
     Indication: SHORT-BOWEL SYNDROME
     Dosage: 999 MILLIGRAM (999 MG KG TED DAILY DOSE, 999 TED DOSES PER WEEK)
     Route: 065
     Dates: start: 201703, end: 20170327
  8. REQUIP [Concomitant]
     Active Substance: ROPINIROLE HYDROCHLORIDE
     Dosage: 0.50 MILLIGRAM, QD
     Route: 048
     Dates: start: 20190905
  9. TEDUGLUTIDE [Suspect]
     Active Substance: TEDUGLUTIDE
     Indication: SHORT-BOWEL SYNDROME
     Dosage: 999 MILLIGRAM (999 MG KG TED DAILY DOSE, 999 TED DOSES PER WEEK)
     Route: 065
     Dates: start: 201703, end: 20170327
  10. EFFEXOR [Concomitant]
     Active Substance: VENLAFAXINE HYDROCHLORIDE
     Indication: DEPRESSION
     Dosage: 37.50 MILLIGRAM, QD
     Route: 048
     Dates: start: 20190412
  11. EFFEXOR [Concomitant]
     Active Substance: VENLAFAXINE HYDROCHLORIDE
     Indication: ANXIETY
  12. PROZAC [Concomitant]
     Active Substance: FLUOXETINE HYDROCHLORIDE
     Indication: ANXIETY
  13. MORPHINE [Concomitant]
     Active Substance: MORPHINE
     Dosage: 4 MILLIGRAM, QD
     Route: 042
     Dates: start: 20180227, end: 20180227

REACTIONS (1)
  - Short-bowel syndrome [Not Recovered/Not Resolved]

NARRATIVE: CASE EVENT DATE: 20180205
